FAERS Safety Report 5591287-0 (Version None)
Quarter: 2008Q1

REPORT INFORMATION
  Report Type: 
  Country: None (occurrence: None)
  Receive Date: 20080110
  Receipt Date: 20080110
  Transmission Date: 20080703
  Serious: Yes (Other)
  Sender: FDA-Public Use
  Company Number: None

PATIENT
  Age: 61 Year
  Sex: Female
  Weight: 84.8226 kg

DRUGS (1)
  1. LYRICA [Suspect]
     Indication: FIBROMYALGIA
     Dosage: 300 MG. THREE TIMES PERDAY  PO
     Route: 048
     Dates: start: 20060306, end: 20070105

REACTIONS (11)
  - ABNORMAL BEHAVIOUR [None]
  - AMNESIA [None]
  - ANGER [None]
  - FEAR [None]
  - FEELING ABNORMAL [None]
  - FLIGHT OF IDEAS [None]
  - LOGORRHOEA [None]
  - MENTAL DISORDER [None]
  - OEDEMA PERIPHERAL [None]
  - SWELLING FACE [None]
  - THIRST [None]
